FAERS Safety Report 5797455-7 (Version None)
Quarter: 2008Q2

REPORT INFORMATION
  Report Type: 
  Country: None (occurrence: None)
  Receive Date: 20080630
  Receipt Date: 20080515
  Transmission Date: 20081010
  Serious: Yes (Death)
  Sender: FDA-Public Use
  Company Number: KADN20080028

PATIENT
  Age: 45 Year
  Sex: Female

DRUGS (5)
  1. KADIAN [Suspect]
     Indication: BACK PAIN
     Dosage: 1 CAP BID, PER ORAL
     Route: 048
     Dates: start: 20080424, end: 20080509
  2. PERCOCET [Suspect]
     Indication: PAIN
     Dosage: 1 TAB Q4 - 6H PRN, PER ORAL
     Route: 048
     Dates: end: 20080101
  3. KLONOPIN [Suspect]
     Dosage: 1 TAB TID, PER ORAL
     Route: 048
     Dates: end: 20080101
  4. TRAZODONE HCL [Suspect]
     Dosage: 1 TAB QHS, PER ORAL
     Route: 048
     Dates: end: 20080101
  5. LITHIUM 500 MG [Suspect]
     Dosage: 1 TAB TID, PER ORAL
     Route: 048
     Dates: end: 20080101

REACTIONS (1)
  - SYNCOPE [None]
